FAERS Safety Report 6054383-X (Version None)
Quarter: 2009Q1

REPORT INFORMATION
  Report Type: 
  Country: None (occurrence: None)
  Receive Date: 20090127
  Receipt Date: 20090119
  Transmission Date: 20090719
  Serious: Yes (Hospitalization)
  Sender: FDA-Public Use
  Company Number: NL-PFIZER INC-2008003147

PATIENT

DRUGS (3)
  1. CELECOXIB [Suspect]
     Indication: OVARIAN CANCER
     Dosage: UNK
     Route: 048
     Dates: start: 20071219, end: 20080128
  2. DOCETAXEL [Suspect]
     Indication: OVARIAN CANCER
     Dosage: UNK
     Dates: start: 20071211
  3. CARBOPLATIN [Suspect]
     Indication: OVARIAN CANCER
     Dosage: UNK

REACTIONS (2)
  - MALAISE [None]
  - SYNCOPE [None]
